FAERS Safety Report 22039431 (Version 1)
Quarter: 2023Q1

REPORT INFORMATION
  Report Type: Spontaneous
  Country: US (occurrence: None)
  Receive Date: 20230227
  Receipt Date: 20230227
  Transmission Date: 20230417
  Serious: Yes (Life-Threatening, Hospitalization, Other)
  Sender: FDA-Public Use
  Company Number: US-MICRO LABS LIMITED-ML2023-01000

PATIENT
  Age: 15 Year
  Sex: Male

DRUGS (2)
  1. DIPHENHYDRAMINE HYDROCHLORIDE [Suspect]
     Active Substance: DIPHENHYDRAMINE HYDROCHLORIDE
     Dosage: 15 DIPHENHYDRAMINE 25 MG
     Route: 048
  2. IBUPROFEN [Suspect]
     Active Substance: IBUPROFEN
     Dosage: (120 G OR 1666 MG/KG)
     Route: 048

REACTIONS (2)
  - Suicide attempt [Recovered/Resolved]
  - Overdose [Unknown]
